FAERS Safety Report 20313001 (Version 15)
Quarter: 2024Q3

REPORT INFORMATION
  Report Type: Spontaneous
  Country: PL (occurrence: PL)
  Receive Date: 20220109
  Receipt Date: 20240808
  Transmission Date: 20241017
  Serious: Yes (Life-Threatening, Hospitalization, Other)
  Sender: AUROBINDO
  Company Number: PL-NOVOPROD-878605

PATIENT
  Age: 29 Year
  Sex: Female

DRUGS (21)
  1. ONDANSETRON [Interacting]
     Active Substance: ONDANSETRON
     Indication: Obesity
     Dosage: 16 MILLIGRAM, ONCE A DAY (16 MG, QD)
     Route: 048
  2. ONDANSETRON [Interacting]
     Active Substance: ONDANSETRON
     Indication: Prophylaxis of nausea and vomiting
  3. BUPROPION HYDROCHLORIDE [Interacting]
     Active Substance: BUPROPION HYDROCHLORIDE
     Indication: Obesity
     Dosage: 150 MILLIGRAM, ONCE A DAY (THROUGH FIRST 6 DAYS)
     Route: 048
  4. BUPROPION HYDROCHLORIDE [Interacting]
     Active Substance: BUPROPION HYDROCHLORIDE
     Indication: Prophylaxis
     Dosage: 300 MILLIGRAM, ONCE A DAY (300 MG, QD)
     Route: 048
  5. BUPROPION HYDROCHLORIDE [Interacting]
     Active Substance: BUPROPION HYDROCHLORIDE
     Dosage: 180 MILLIGRAM, ONCE A DAY (THROUGH FIRST 6 DAYS)
     Route: 048
  6. BUPROPION HYDROCHLORIDE [Interacting]
     Active Substance: BUPROPION HYDROCHLORIDE
     Indication: Obesity
     Dosage: 150 MILLIGRAM, ONCE A DAY (THROUGH FIRST 6 DAYS)
     Route: 048
  7. BUPROPION HYDROCHLORIDE [Interacting]
     Active Substance: BUPROPION HYDROCHLORIDE
     Indication: Prophylaxis
     Dosage: 300 MILLIGRAM, ONCE A DAY (300 MG, QD)
     Route: 048
  8. BUPROPION HYDROCHLORIDE\NALTREXONE HYDROCHLORIDE [Suspect]
     Active Substance: BUPROPION HYDROCHLORIDE\NALTREXONE HYDROCHLORIDE
     Indication: Obesity
     Dosage: UNK,8/90 MILLIGRAM, ONCE A DAY
     Route: 048
  9. BUPROPION HYDROCHLORIDE\NALTREXONE HYDROCHLORIDE [Suspect]
     Active Substance: BUPROPION HYDROCHLORIDE\NALTREXONE HYDROCHLORIDE
     Dosage: UNK,8/90 MILLIGRAM, ONCE A DAY
     Route: 048
  10. BUPROPION HYDROCHLORIDE\NALTREXONE HYDROCHLORIDE [Interacting]
     Active Substance: BUPROPION HYDROCHLORIDE\NALTREXONE HYDROCHLORIDE
     Indication: Obesity
     Dosage: 2 DOSAGE FORM, ONCE A DAY/8/90 MILLIGRAM, QD
     Route: 048
  11. BUPROPION HYDROCHLORIDE\NALTREXONE HYDROCHLORIDE [Interacting]
     Active Substance: BUPROPION HYDROCHLORIDE\NALTREXONE HYDROCHLORIDE
     Dosage: 1 DOSAGE FORM, ONCE A DAY
     Route: 048
  12. NALTREXONE [Suspect]
     Active Substance: NALTREXONE
     Indication: Obesity
     Dosage: 8 MILLIGRAM, ONCE A DAY
     Route: 065
  13. NALTREXONE [Suspect]
     Active Substance: NALTREXONE
     Indication: Prophylaxis
     Dosage: 16 MILLIGRAM (8MG TABLET (2 TABLETS AFTER LUNCH).
     Route: 048
  14. OZEMPIC [Interacting]
     Active Substance: SEMAGLUTIDE
     Indication: Obesity
     Dosage: 0.5 MILLIGRAM, EVERY WEEK (0.5 MG WEEKLY)
     Route: 058
  15. OZEMPIC [Suspect]
     Active Substance: SEMAGLUTIDE
     Indication: Obesity
     Dosage: 5 MILLIGRAM, EVERY WEEK
     Route: 048
  16. ONDANSETRON [Suspect]
     Active Substance: ONDANSETRON
     Indication: Prophylaxis of nausea and vomiting
     Dosage: 16 MILLIGRAM, ONCE A DAY
     Route: 048
  17. SEMAGLUTIDE [Suspect]
     Active Substance: SEMAGLUTIDE
     Indication: Obesity
     Dosage: 0.5 MILLIGRAM, EVERY WEEK
     Route: 058
  18. SEMAGLUTIDE [Suspect]
     Active Substance: SEMAGLUTIDE
     Indication: Prophylaxis
     Dosage: 0.5 MILLIGRAM, EVERY WEEK
     Route: 058
  19. SEMAGLUTIDE [Suspect]
     Active Substance: SEMAGLUTIDE
     Dosage: 0.5 MILLIGRAM, EVERY WEEK
     Route: 065
  20. VORTIOXETINE [Interacting]
     Active Substance: VORTIOXETINE HYDROBROMIDE
     Indication: Obesity
     Dosage: 10 MILLIGRAM, ONCE A DAY (TAKEN AFTER LAST MEAL)
     Route: 048
  21. VORTIOXETINE [Interacting]
     Active Substance: VORTIOXETINE HYDROBROMIDE
     Indication: Prophylaxis

REACTIONS (22)
  - Serotonin syndrome [Recovered/Resolved]
  - Urine output decreased [Recovered/Resolved]
  - Hyperhidrosis [Recovered/Resolved]
  - Body temperature increased [Recovered/Resolved]
  - Headache [Recovered/Resolved]
  - Myopathy [Recovered/Resolved]
  - Chills [Recovered/Resolved]
  - Myalgia [Recovered/Resolved]
  - Muscle spasms [Recovered/Resolved]
  - Urine flow decreased [Recovered/Resolved]
  - Myoglobinuria [Recovered/Resolved]
  - Rhabdomyolysis [Recovering/Resolving]
  - Drug interaction [Recovered/Resolved]
  - Renal failure [Recovered/Resolved]
  - Off label use [Unknown]
  - Labelled drug-drug interaction medication error [Recovering/Resolving]
  - Contraindicated product prescribed [Unknown]
  - Contraindicated product administered [Unknown]
  - Drug titration error [Unknown]
  - Product prescribing error [Unknown]
  - Product use in unapproved indication [Unknown]
  - Urinary retention [Recovering/Resolving]
